FAERS Safety Report 19403440 (Version 2)
Quarter: 2021Q2

REPORT INFORMATION
  Report Type: Spontaneous
  Country: JP (occurrence: JP)
  Receive Date: 20210610
  Receipt Date: 20210630
  Transmission Date: 20210717
  Serious: Yes (Other)
  Sender: FDA-Public Use
  Company Number: NVSJ2021JP005890

PATIENT
  Age: 71 Year
  Sex: Female
  Weight: 42 kg

DRUGS (18)
  1. OFEV [Concomitant]
     Active Substance: NINTEDANIB
     Indication: INTERSTITIAL LUNG DISEASE
     Dosage: 100 MG, BID
     Route: 048
     Dates: start: 20210105
  2. FEBURIC [Concomitant]
     Active Substance: FEBUXOSTAT
     Indication: HYPERURICAEMIA
     Dosage: 10 MG, BID
     Route: 048
  3. BAYASPIRIN [Concomitant]
     Active Substance: ASPIRIN
     Indication: MYOCARDIAL INFARCTION
     Dosage: 100 MG, QD
     Route: 048
  4. BENIDIPINE [Suspect]
     Active Substance: BENIDIPINE
     Indication: HYPERTENSION
     Dosage: 4 MG, BID
     Route: 048
     Dates: end: 20210324
  5. SARPOGRELATE [Concomitant]
     Active Substance: SARPOGRELATE
     Indication: ARTERIAL OCCLUSIVE DISEASE
     Dosage: 100 MG, QD
     Route: 048
  6. AMLODIPINE [Suspect]
     Active Substance: AMLODIPINE BESYLATE
     Indication: PRODUCT USED FOR UNKNOWN INDICATION
     Dosage: UNK
     Route: 065
  7. DOXAZOSIN [Suspect]
     Active Substance: DOXAZOSIN MESYLATE
     Indication: HYPERTENSION
     Dosage: 2 MG, QD
     Route: 048
     Dates: end: 20210324
  8. ENTRESTO [Suspect]
     Active Substance: SACUBITRIL\VALSARTAN
     Indication: CARDIAC FAILURE
     Dosage: 50 MG
     Route: 048
     Dates: start: 20210323, end: 20210324
  9. WARFARIN [Concomitant]
     Active Substance: WARFARIN
     Indication: MYOCARDIAL INFARCTION
     Dosage: 1 MG, QD
     Route: 048
  10. NIFEDIPINE. [Suspect]
     Active Substance: NIFEDIPINE
     Indication: HYPERTENSION
     Dosage: 20 MG, BID
     Route: 048
     Dates: end: 20210324
  11. AZOSEMIDE [Suspect]
     Active Substance: AZOSEMIDE
     Indication: CARDIAC FAILURE
     Dosage: 60 MG, QD
     Route: 048
     Dates: start: 20210302, end: 20210324
  12. CILOSTAZOL. [Concomitant]
     Active Substance: CILOSTAZOL
     Indication: INFARCTION
     Dosage: 100 MG, BID
     Route: 048
  13. AMIODARONE [Concomitant]
     Active Substance: AMIODARONE
     Indication: ARRHYTHMIA
     Dosage: 100 MG
     Route: 048
  14. SPIRONOLACTONE. [Suspect]
     Active Substance: SPIRONOLACTONE
     Indication: CARDIAC FAILURE
     Dosage: 25 MG, BID
     Route: 048
     Dates: end: 20210324
  15. ASPARTATE POTASSIUM [Concomitant]
     Active Substance: POTASSIUM ASPARTATE
     Indication: HYPOKALAEMIA
     Dosage: 400 MG
     Route: 048
     Dates: start: 20210302, end: 20210324
  16. TAKECAB [Concomitant]
     Active Substance: VONOPRAZAN FUMARATE
     Indication: GASTRIC ULCER
     Dosage: 20 MG
     Route: 048
  17. VALSARTAN. [Suspect]
     Active Substance: VALSARTAN
     Indication: CARDIAC FAILURE
     Dosage: 80 MG
     Route: 048
     Dates: start: 20210323, end: 20210324
  18. SAMSCA [Suspect]
     Active Substance: TOLVAPTAN
     Indication: CARDIAC FAILURE
     Dosage: 7.5 MG, QD
     Route: 048
     Dates: start: 20210302, end: 20210324

REACTIONS (2)
  - Hypotension [Recovered/Resolved]
  - Contraindicated product administered [Unknown]

NARRATIVE: CASE EVENT DATE: 20210324
